FAERS Safety Report 7092772-5 (Version None)
Quarter: 2010Q4

REPORT INFORMATION
  Report Type: 
  Country: None (occurrence: None)
  Receive Date: 20101110
  Receipt Date: 20101029
  Transmission Date: 20110411
  Serious: Yes (Hospitalization)
  Sender: FDA-Public Use
  Company Number: JP-ASTRAZENECA-2010SE49810

PATIENT
  Age: 53 Year
  Sex: Male
  Weight: 71 kg

DRUGS (8)
  1. BLOPRESS [Suspect]
     Indication: CARDIAC FAILURE CHRONIC
     Route: 048
     Dates: start: 20080628, end: 20100926
  2. CRESTOR [Suspect]
     Indication: HYPERLIPIDAEMIA
     Route: 048
     Dates: start: 20100916, end: 20100927
  3. ZANTAC [Suspect]
     Indication: STRESS ULCER
     Route: 048
     Dates: start: 20100916, end: 20100927
  4. LASIX [Concomitant]
     Dosage: DOSE UNKNOWN
     Route: 048
     Dates: start: 19970101
  5. WARFARIN [Concomitant]
     Dosage: DOSE UNKNOWN
     Route: 048
     Dates: start: 19970101
  6. ALDACTONE [Concomitant]
     Dosage: DOSE UNKNOWN
     Route: 048
     Dates: start: 20080713
  7. 8-HOUR BAYER [Concomitant]
     Route: 048
     Dates: start: 20100916
  8. ARTIST [Concomitant]
     Route: 048
     Dates: start: 20100916, end: 20100918

REACTIONS (1)
  - RHABDOMYOLYSIS [None]
